FAERS Safety Report 9898974 (Version 1)
Quarter: 2014Q1

REPORT INFORMATION
  Report Type: Spontaneous
  Country: US (occurrence: US)
  Receive Date: 20140214
  Receipt Date: 20140214
  Transmission Date: 20141002
  Serious: Yes (Other)
  Sender: FDA-Public Use
  Company Number: US-GLAXOSMITHKLINE-A1060995A

PATIENT
  Sex: Male

DRUGS (3)
  1. LAMICTAL [Suspect]
     Indication: EPILEPSY
     Route: 065
  2. KEPPRA [Suspect]
     Indication: EPILEPSY
     Route: 065
  3. VIMPAT [Suspect]
     Indication: EPILEPSY
     Route: 065

REACTIONS (9)
  - Convulsion [Unknown]
  - Pain [Unknown]
  - Drug ineffective [Unknown]
  - Grand mal convulsion [Unknown]
  - Fatigue [Unknown]
  - Malnutrition [Unknown]
  - Treatment noncompliance [Unknown]
  - Asthenia [Unknown]
  - Somnolence [Unknown]
